FAERS Safety Report 5848966-7 (Version None)
Quarter: 2008Q3

REPORT INFORMATION
  Report Type: 
  Country: None (occurrence: None)
  Receive Date: 20080819
  Receipt Date: 20080813
  Transmission Date: 20090109
  Serious: Yes (Death, Hospitalization)
  Sender: FDA-Public Use
  Company Number: PHBS2008US05391

PATIENT
  Age: 71 Year
  Sex: Female

DRUGS (3)
  1. CYCLOSPORINE [Suspect]
     Indication: RENAL TRANSPLANT
     Dosage: TROUGH LEVELS 50-100 NG/ML
     Dates: start: 19990101
  2. MYCOPHENOLATE MOFETIL [Concomitant]
     Indication: RENAL TRANSPLANT
     Dosage: 2G/DAY
     Dates: start: 19990101
  3. PREDNISONE [Concomitant]
     Indication: RENAL TRANSPLANT
     Dosage: 5MG/DAY
     Dates: start: 19990101

REACTIONS (15)
  - ABDOMINAL PAIN [None]
  - BILE DUCT STENOSIS [None]
  - BILIARY DILATATION [None]
  - CARDIAC FAILURE [None]
  - CHOLANGITIS [None]
  - CYSTOSTOMY [None]
  - HEPATIC CYST [None]
  - HEPATOMEGALY [None]
  - MALNUTRITION [None]
  - METASTASES TO LYMPH NODES [None]
  - ORAL HERPES [None]
  - PANCREATIC CARCINOMA METASTATIC [None]
  - PANCREATIC MASS [None]
  - PANCREATICODUODENECTOMY [None]
  - SEPSIS [None]
